FAERS Safety Report 16710147 (Version 3)
Quarter: 2019Q3

REPORT INFORMATION
  Report Type: Report from Study
  Country: CO (occurrence: CO)
  Receive Date: 20190816
  Receipt Date: 20190916
  Transmission Date: 20191004
  Serious: Yes (Hospitalization, Other)
  Sender: FDA-Public Use
  Company Number: CO-ASTELLAS-2019US007674

PATIENT
  Age: 68 Year
  Sex: Male

DRUGS (9)
  1. CALCITRIOL. [Concomitant]
     Active Substance: CALCITRIOL
     Indication: RENAL TRANSPLANT
     Dosage: 1 MG, ONCE DAILY (2 TABLETS OF 0.5 MG)
     Route: 048
     Dates: start: 20190117
  2. TACROLIMUS. [Suspect]
     Active Substance: TACROLIMUS
     Dosage: 0.5 MG, ONCE DAILY (1 CAPSULE OF 0.5MG)
     Route: 048
     Dates: start: 20190723, end: 20190808
  3. AMLODIPINE [Concomitant]
     Active Substance: AMLODIPINE BESYLATE
     Indication: PRODUCT USED FOR UNKNOWN INDICATION
     Route: 048
     Dates: start: 20190117
  4. TACROLIMUS. [Suspect]
     Active Substance: TACROLIMUS
     Indication: RENAL TRANSPLANT
     Dosage: 7 MG, ONCE DAILY (2 CAPSULES OF 1 MG AND 1 CAPSULE OF 5 MG)
     Route: 048
     Dates: start: 20190117
  5. PREDNISOLONE. [Concomitant]
     Active Substance: PREDNISOLONE
     Indication: RENAL TRANSPLANT
     Route: 048
     Dates: start: 20190117
  6. TACROLIMUS. [Suspect]
     Active Substance: TACROLIMUS
     Dosage: 3 MG, ONCE DAILY ( 3 CAPSULES OF 1MG)
     Route: 048
     Dates: end: 20190722
  7. CARVEDILOL. [Concomitant]
     Active Substance: CARVEDILOL
     Indication: RENAL TRANSPLANT
     Route: 048
     Dates: start: 20190117
  8. VALGANCICLOVIR. [Concomitant]
     Active Substance: VALGANCICLOVIR
     Indication: RENAL TRANSPLANT
     Route: 048
     Dates: start: 20190117
  9. MYCOPHENOLATE [Concomitant]
     Active Substance: MYCOPHENOLIC ACID
     Indication: RENAL TRANSPLANT
     Dosage: 720 MG, ONCE DAILY (2 CAPSULES OF 360 MG EVERY 24 HOURS)
     Route: 048
     Dates: start: 20190117

REACTIONS (8)
  - Cough [Recovered/Resolved]
  - Blood creatinine increased [Recovered/Resolved]
  - Fluid retention [Recovering/Resolving]
  - Asphyxia [Recovered/Resolved]
  - Blood creatinine increased [Recovering/Resolving]
  - Swelling face [Not Recovered/Not Resolved]
  - Renal transplant failure [Recovering/Resolving]
  - Peripheral swelling [Not Recovered/Not Resolved]

NARRATIVE: CASE EVENT DATE: 20190218
